FAERS Safety Report 5285335-5 (Version None)
Quarter: 2007Q2

REPORT INFORMATION
  Report Type: 
  Country: None (occurrence: None)
  Receive Date: 20070403
  Receipt Date: 20070322
  Transmission Date: 20071010
  Serious: Yes (Other)
  Sender: FDA-Public Use
  Company Number: AR-PFIZER INC-2007024132

PATIENT
  Sex: Male
  Weight: 73 kg

DRUGS (3)
  1. LYRICA [Suspect]
     Indication: DIABETIC NEUROPATHY
     Route: 048
  2. LOTRIAL [Concomitant]
     Route: 048
  3. ACALIX [Concomitant]
     Route: 048

REACTIONS (6)
  - BURNING SENSATION [None]
  - DRUG INEFFECTIVE [None]
  - GLOSSODYNIA [None]
  - LIP SWELLING [None]
  - PARAESTHESIA [None]
  - TONGUE DISORDER [None]
